FAERS Safety Report 23643963 (Version 2)
Quarter: 2024Q1

REPORT INFORMATION
  Report Type: Report from Study
  Country: ES (occurrence: ES)
  Receive Date: 20240318
  Receipt Date: 20240327
  Transmission Date: 20240410
  Serious: Yes (Hospitalization, Other)
  Sender: FDA-Public Use
  Company Number: ES-002147023-NVSC2024ES055453

PATIENT
  Age: 43 Year
  Sex: Male
  Weight: 77 kg

DRUGS (1)
  1. FABHALTA [Suspect]
     Active Substance: IPTACOPAN HYDROCHLORIDE
     Indication: Immune thrombocytopenia
     Dosage: 200 MG, BID (400 MG) (STRENGTH: 200 MG)
     Route: 048
     Dates: start: 20240209, end: 20240308

REACTIONS (6)
  - Pneumococcal sepsis [Unknown]
  - Septic shock [Unknown]
  - Multiple organ dysfunction syndrome [Unknown]
  - Platelet count decreased [Unknown]
  - Pneumonia streptococcal [Recovered/Resolved]
  - Pneumococcal bacteraemia [Unknown]

NARRATIVE: CASE EVENT DATE: 20240308
